FAERS Safety Report 10220651 (Version 2)
Quarter: 2014Q3

REPORT INFORMATION
  Report Type: Spontaneous
  Country: IT (occurrence: IT)
  Receive Date: 20140606
  Receipt Date: 20140716
  Transmission Date: 20150326
  Serious: Yes (Hospitalization)
  Sender: FDA-Public Use
  Company Number: IT-TEVA-485118ISR

PATIENT
  Age: 51 Year
  Sex: Female

DRUGS (2)
  1. PACLITAXEL TEVA [Suspect]
     Active Substance: PACLITAXEL
     Indication: OVARIAN CANCER
     Dosage: 282 MILLIGRAM DAILY;
     Route: 042
     Dates: start: 20140410, end: 20140410
  2. CARBOPLATINO TEVA [Suspect]
     Active Substance: CARBOPLATIN
     Indication: OVARIAN CANCER
     Dosage: 524 MILLIGRAM DAILY;
     Route: 041
     Dates: start: 20140320, end: 20140410

REACTIONS (6)
  - Tachycardia [Recovered/Resolved]
  - Rash generalised [Recovered/Resolved]
  - Vertigo [Recovered/Resolved]
  - Hyperhidrosis [Recovered/Resolved]
  - Formication [Recovered/Resolved]
  - Visual impairment [Recovered/Resolved]

NARRATIVE: CASE EVENT DATE: 20140410
